FAERS Safety Report 4784995-2 (Version None)
Quarter: 2005Q3

REPORT INFORMATION
  Report Type: 
  Country: None (occurrence: None)
  Receive Date: 20050928
  Receipt Date: 20050914
  Transmission Date: 20060218
  Serious: Yes (Hospitalization, Other)
  Sender: FDA-Public Use
  Company Number: USA0509108198

PATIENT
  Sex: Female

DRUGS (6)
  1. FORTEO [Suspect]
     Indication: OSTEOPOROSIS
     Dates: start: 20050303, end: 20050828
  2. ATENOLOL [Concomitant]
  3. NORVASC [Concomitant]
  4. ASPIRIN [Concomitant]
  5. CALCIUM AND VITAMIN D [Concomitant]
  6. VITAMIN D [Concomitant]

REACTIONS (9)
  - DYSGRAPHIA [None]
  - FATIGUE [None]
  - HYPERCALCAEMIA [None]
  - HYPERTENSION [None]
  - IMPAIRED DRIVING ABILITY [None]
  - LOSS OF CONSCIOUSNESS [None]
  - PHARMACEUTICAL PRODUCT COMPLAINT [None]
  - SPEECH DISORDER [None]
  - UNEVALUABLE EVENT [None]
